FAERS Safety Report 9524068 (Version 1)
Quarter: 2013Q3

REPORT INFORMATION
  Report Type: Spontaneous
  Country: US (occurrence: None)
  Receive Date: 20130912
  Receipt Date: 20130912
  Transmission Date: 20140515
  Serious: Yes (Disabling, Other)
  Sender: FDA-Public Use
  Company Number: None

PATIENT
  Age: 49 Year
  Sex: Male
  Weight: 81.65 kg

DRUGS (2)
  1. AZITHROMYCIN [Suspect]
     Indication: COUGH
     Dosage: 2 PILLS FIRST DAY AND THEN 1
     Route: 048
     Dates: start: 20130208, end: 20130211
  2. AZITHROMYCIN [Suspect]
     Indication: INFLUENZA
     Dosage: 2 PILLS FIRST DAY AND THEN 1
     Route: 048
     Dates: start: 20130208, end: 20130211

REACTIONS (6)
  - Feeling abnormal [None]
  - Palpitations [None]
  - Dizziness [None]
  - Feeling abnormal [None]
  - Arrhythmia [None]
  - Cardiac disorder [None]
